FAERS Safety Report 5784237-5 (Version None)
Quarter: 2008Q2

REPORT INFORMATION
  Report Type: 
  Country: None (occurrence: None)
  Receive Date: 20080619
  Receipt Date: 20080619
  Transmission Date: 20081010
  Serious: Yes (Other)
  Sender: FDA-Public Use
  Company Number: None

PATIENT
  Sex: Female
  Weight: 95.709 kg

DRUGS (6)
  1. LEVBID/HYOSCYAMINE SULFATE ER 0.375 MG SA TAB [Suspect]
     Indication: GASTROOESOPHAGEAL REFLUX DISEASE
     Dosage: 2X PO
     Route: 048
     Dates: start: 20080104, end: 20080610
  2. LEVBID/HYOSCYAMINE SULFATE ER 0.375 MG SA TAB [Suspect]
     Indication: HERNIA
     Dosage: 2X PO
     Route: 048
     Dates: start: 20080104, end: 20080610
  3. LEVBID/HYOSCYAMINE SULFATE ER 0.375 MG SA TAB [Suspect]
     Indication: OESOPHAGEAL SPASM
     Dosage: 2X PO
     Route: 048
     Dates: start: 20080104, end: 20080610
  4. NULEV HYOSCYAMINE SULFATE 0.125MG PO TAB [Suspect]
     Indication: GASTROOESOPHAGEAL REFLUX DISEASE
     Dosage: 2X PO
     Route: 048
     Dates: start: 20080614, end: 20080615
  5. NULEV HYOSCYAMINE SULFATE 0.125MG PO TAB [Suspect]
     Indication: HERNIA
     Dosage: 2X PO
     Route: 048
     Dates: start: 20080614, end: 20080615
  6. NULEV HYOSCYAMINE SULFATE 0.125MG PO TAB [Suspect]
     Indication: OESOPHAGEAL SPASM
     Dosage: 2X PO
     Route: 048
     Dates: start: 20080614, end: 20080615

REACTIONS (5)
  - ALPHA-1 ANTI-TRYPSIN DEFICIENCY [None]
  - BONE PAIN [None]
  - CHEST PAIN [None]
  - RENAL IMPAIRMENT [None]
  - URETERAL DISORDER [None]
